FAERS Safety Report 7174540-9 (Version None)
Quarter: 2010Q4

REPORT INFORMATION
  Report Type: 
  Country: None (occurrence: None)
  Receive Date: 20101215
  Receipt Date: 20101215
  Transmission Date: 20110411
  Serious: Yes (Other)
  Sender: FDA-Public Use
  Company Number: None

PATIENT
  Sex: Female
  Weight: 95.2554 kg

DRUGS (2)
  1. PROPOXYPHENE HCL AND ACETAMINOPHEN [Suspect]
     Indication: BACK PAIN
     Dosage: 1 EVERY 6 HR ORAL
     Route: 048
  2. PROPOXYPHENE HCL AND ACETAMINOPHEN [Suspect]
     Dosage: 1 EVER 12HRS ORAL
     Route: 048

REACTIONS (1)
  - PALPITATIONS [None]
